FAERS Safety Report 22027925 (Version 2)
Quarter: 2023Q1

REPORT INFORMATION
  Report Type: Spontaneous
  Country: US (occurrence: US)
  Receive Date: 20230223
  Receipt Date: 20230322
  Transmission Date: 20230418
  Serious: No
  Sender: FDA-Public Use
  Company Number: US-BEH-2023155553

PATIENT
  Age: 67 Year
  Sex: Female

DRUGS (19)
  1. HIZENTRA [Suspect]
     Active Substance: HUMAN IMMUNOGLOBULIN G
     Indication: Myasthenia gravis
     Dosage: 14 GRAM, QW
     Route: 058
  2. HIZENTRA [Suspect]
     Active Substance: HUMAN IMMUNOGLOBULIN G
     Dosage: 14 GRAM, QW
     Route: 065
     Dates: start: 20210614
  3. HIZENTRA [Suspect]
     Active Substance: HUMAN IMMUNOGLOBULIN G
     Dosage: UNK
     Route: 058
     Dates: start: 20230224
  4. OXYCODONE HYDROCHLORIDE [Concomitant]
     Active Substance: OXYCODONE HYDROCHLORIDE
  5. AIMOVIG [Concomitant]
     Active Substance: ERENUMAB-AOOE
  6. BUSPIRONE HCL [Concomitant]
     Active Substance: BUSPIRONE HYDROCHLORIDE
  7. CALCIUM\VITAMIN D [Concomitant]
     Active Substance: CALCIUM\VITAMIN D
  8. DECADRON [Concomitant]
     Active Substance: DEXAMETHASONE
  9. LEVOTHYROXINE SODIUM [Concomitant]
     Active Substance: LEVOTHYROXINE SODIUM
  10. LEXAPRO [Concomitant]
     Active Substance: ESCITALOPRAM OXALATE
  11. LIPITOR [Concomitant]
     Active Substance: ATORVASTATIN CALCIUM
  12. MESTINON [Concomitant]
     Active Substance: PYRIDOSTIGMINE BROMIDE
  13. METRONIDAZOLE SODIUM [Concomitant]
     Active Substance: METRONIDAZOLE SODIUM
  14. VITAMINS NOS [Concomitant]
     Active Substance: VITAMINS
  15. IRON [Concomitant]
     Active Substance: IRON
  16. OMEPRAZOLE SODIUM [Concomitant]
     Active Substance: OMEPRAZOLE SODIUM
  17. ONDANSETRON HCL [Concomitant]
     Active Substance: ONDANSETRON HYDROCHLORIDE
  18. RESTASIS [Concomitant]
     Active Substance: CYCLOSPORINE
  19. SELENIUM [Concomitant]
     Active Substance: SELENIUM

REACTIONS (8)
  - Joint swelling [Unknown]
  - Arthralgia [Unknown]
  - Fall [Unknown]
  - Muscle injury [Unknown]
  - No adverse event [Unknown]
  - Off label use [Unknown]
  - No adverse event [Unknown]
  - Product supply issue [Unknown]

NARRATIVE: CASE EVENT DATE: 20230310
